FAERS Safety Report 5279758-8 (Version None)
Quarter: 2007Q1

REPORT INFORMATION
  Report Type: 
  Country: None (occurrence: None)
  Receive Date: 20061208
  Receipt Date: 20050527
  Transmission Date: 20070707
  Serious: Yes (Hospitalization)
  Sender: FDA-Public Use
  Company Number: 2005UW01188

PATIENT
  Age: 52 Year
  Sex: Female
  Weight: 106.1 kg

DRUGS (12)
  1. CRESTOR [Suspect]
     Dates: start: 20040120
  2. LANTUS [Suspect]
     Indication: DIABETES MELLITUS
     Dates: start: 20040629
  3. GLUCOTROL XL [Suspect]
     Indication: DIABETES MELLITUS
     Dates: start: 20040106
  4. METFORMIN HCL [Suspect]
     Indication: DIABETES MELLITUS
     Dates: start: 20040410
  5. LOTENSIN HCT [Suspect]
     Indication: HYPERTENSION
     Dosage: 20/125
     Dates: start: 20040120
  6. PLAVIX [Suspect]
     Indication: CORONARY ARTERY DISEASE
     Dates: start: 20031218
  7. CELEBREX [Suspect]
     Indication: PAIN
     Dates: start: 20040608
  8. ECOTRIN [Suspect]
     Indication: CORONARY ARTERY DISEASE
     Dates: start: 20031218
  9. ISOSORBIDE [Suspect]
     Indication: HYPERTENSION
     Dates: start: 20041218
  10. NEURONTIN [Suspect]
     Indication: PAIN
     Dates: start: 20040608
  11. SSRI [Suspect]
     Dates: start: 20040608
  12. PROTONIX [Concomitant]

REACTIONS (2)
  - CHEST PAIN [None]
  - DIZZINESS [None]
